FAERS Safety Report 6823164-9 (Version None)
Quarter: 2010Q3

REPORT INFORMATION
  Report Type: 
  Country: None (occurrence: None)
  Receive Date: 20100708
  Receipt Date: 20100625
  Transmission Date: 20110219
  Serious: Yes (Hospitalization)
  Sender: FDA-Public Use
  Company Number: DK-WATSON-2010-08902

PATIENT
  Age: 31 Year
  Sex: Female

DRUGS (2)
  1. PREDNISOLONE (WATSON LABORATORIES) [Suspect]
     Indication: CROHN'S DISEASE
     Dosage: 15 MG, DAILY
  2. AZATHIOPRINE [Suspect]
     Indication: CROHN'S DISEASE
     Dosage: 150 MG, DAILY

REACTIONS (2)
  - CYTOMEGALOVIRUS INFECTION [None]
  - HISTIOCYTOSIS HAEMATOPHAGIC [None]
